FAERS Safety Report 24757844 (Version 1)
Quarter: 2024Q4

REPORT INFORMATION
  Report Type: Report from Study
  Country: US (occurrence: US)
  Receive Date: 20241220
  Receipt Date: 20241220
  Transmission Date: 20250115
  Serious: Yes (Other)
  Sender: JOHNSON AND JOHNSON
  Company Number: US-JNJFOC-20241233681

PATIENT
  Age: 43 Year
  Sex: Male

DRUGS (3)
  1. SPRAVATO [Suspect]
     Active Substance: ESKETAMINE
     Indication: Depression
     Dosage: ^^56 MG, 1 TOTAL DOSE^^
     Route: 045
     Dates: start: 20241015, end: 20241015
  2. SPRAVATO [Suspect]
     Active Substance: ESKETAMINE
     Dosage: ^^84 MG, 11 TOTAL DOSES^^
     Route: 045
     Dates: start: 20241017, end: 20241204
  3. SPRAVATO [Suspect]
     Active Substance: ESKETAMINE
     Dosage: ^^84 MG, 1 TOTAL DOSE^^, RECENT DOSE
     Route: 045
     Dates: start: 20241211, end: 20241211

REACTIONS (8)
  - Consciousness fluctuating [Recovered/Resolved]
  - Unresponsive to stimuli [Recovered/Resolved]
  - Apnoea [Recovered/Resolved]
  - Eye movement disorder [Recovered/Resolved]
  - Muscle rigidity [Recovered/Resolved]
  - Hypotonia [Recovered/Resolved]
  - Dissociation [Recovered/Resolved]
  - Sedation [Recovered/Resolved]

NARRATIVE: CASE EVENT DATE: 20241211
